FAERS Safety Report 17859646 (Version 1)
Quarter: 2020Q2

REPORT INFORMATION
  Report Type: Spontaneous
  Country: US (occurrence: US)
  Receive Date: 20200603
  Receipt Date: 20200603
  Transmission Date: 20200714
  Serious: Yes (Death)
  Sender: FDA-Public Use
  Company Number: None

PATIENT
  Age: 60 Year
  Sex: Male
  Weight: 88.4 kg

DRUGS (1)
  1. ERBITUX [Suspect]
     Active Substance: CETUXIMAB
     Indication: METASTATIC SQUAMOUS CELL CARCINOMA
     Route: 042

REACTIONS (9)
  - Cardiac arrest [None]
  - Brain injury [None]
  - Unresponsive to stimuli [None]
  - Lip discolouration [None]
  - Swollen tongue [None]
  - Anaphylactic shock [None]
  - Respiratory arrest [None]
  - Swelling face [None]
  - Erythema [None]

NARRATIVE: CASE EVENT DATE: 20200401
